FAERS Safety Report 17585862 (Version 1)
Quarter: 2020Q1

REPORT INFORMATION
  Report Type: Spontaneous
  Country: US (occurrence: US)
  Receive Date: 20200326
  Receipt Date: 20200326
  Transmission Date: 20200409
  Serious: Yes (Death)
  Sender: FDA-Public Use
  Company Number: US-PFIZER INC-2017099292

PATIENT
  Age: 83 Year
  Sex: Female

DRUGS (20)
  1. ASPIRIN. [Concomitant]
     Active Substance: ASPIRIN
     Dosage: 81 MG, 1X/DAY (AM)
  2. PROBIOTIC [Concomitant]
     Active Substance: PROBIOTICS NOS
     Dosage: UNK UNK, 1X/DAY (LUNCH)
  3. FUROSEMIDE. [Concomitant]
     Active Substance: FUROSEMIDE
     Dosage: 40 MG, ALTERNATE DAY (AM)
  4. PRILOSEC [Concomitant]
     Active Substance: OMEPRAZOLE MAGNESIUM
     Dosage: 20 MG, 1X/DAY (BEFORE BREAKFAST)
  5. LYRICA [Suspect]
     Active Substance: PREGABALIN
     Indication: LUMBAR SPINAL STENOSIS
     Dosage: 75 MG, 2X/DAY (Q 12, AM, PM)
     Route: 048
  6. TOPAMAX [Concomitant]
     Active Substance: TOPIRAMATE
     Dosage: 50 MG, 2X/DAY (1/2 PILL (AM, PM))
  7. ALEVE [Concomitant]
     Active Substance: NAPROXEN SODIUM
     Dosage: 220 MG, 2X/DAY (ONE IN THE AM, ONE IN THE PM)
  8. HYDROCODONE/ACETAMINOPHEN [Concomitant]
     Active Substance: ACETAMINOPHEN\HYDROCODONE
     Dosage: 0.5 DF, 3X/DAY (HYDROCODONE BITARTRATE 10/PARACETAMOL 325)
  9. VITAMIN D [Concomitant]
     Active Substance: VITAMIN D NOS
     Dosage: 2600 IU, 1X/DAY (DINNER)
  10. VITAMIN B12 [Concomitant]
     Active Substance: CYANOCOBALAMIN
     Dosage: 1000 UG, 1X/DAY (AM)
  11. CELEXA [Concomitant]
     Active Substance: CITALOPRAM HYDROBROMIDE
     Dosage: 20 MG, 1X/DAY (PM)
  12. LOSARTAN. [Concomitant]
     Active Substance: LOSARTAN
     Dosage: 100 MG, 1X/DAY (PM)
  13. CHLORZOXAZONE. [Concomitant]
     Active Substance: CHLORZOXAZONE
     Dosage: 500 MG, 2X/DAY (AM, PM)
  14. KLOR-CON [Concomitant]
     Active Substance: POTASSIUM CHLORIDE
     Dosage: 5 MEQ, 1X/DAY [1/2 PILL DAILY (AM)]
  15. L-LYSINE [Concomitant]
     Active Substance: LYSINE
     Dosage: 500 MG, 1X/DAY (AM)
  16. LOPRESSOR [Concomitant]
     Active Substance: METOPROLOL TARTRATE
     Dosage: 100 MG, 2X/DAY (AM, PM)
  17. COLACE [Concomitant]
     Active Substance: DOCUSATE SODIUM
     Dosage: 100 MG, 2X/DAY (ONE IN THE AM, ONE AT DINNER)
  18. NORVASC [Concomitant]
     Active Substance: AMLODIPINE BESYLATE
     Dosage: 10 MG, 1X/DAY (AM)
  19. MELATONIN [Concomitant]
     Active Substance: MELATONIN
     Dosage: 5 MG, AS NEEDED (PM)
  20. SYNTHROID [Concomitant]
     Active Substance: LEVOTHYROXINE SODIUM
     Dosage: 100 UG, 1X/DAY (WHEN FIRST AWAKE)

REACTIONS (1)
  - Death [Fatal]

NARRATIVE: CASE EVENT DATE: 20200312
